FAERS Safety Report 25577147 (Version 1)
Quarter: 2025Q3

REPORT INFORMATION
  Report Type: Spontaneous
  Country: TW (occurrence: TW)
  Receive Date: 20250718
  Receipt Date: 20250718
  Transmission Date: 20251021
  Serious: Yes (Other)
  Sender: FRESENIUS KABI
  Company Number: TW-FreseniusKabi-FK202509416

PATIENT
  Age: 50 Year
  Sex: Female
  Weight: 60 kg

DRUGS (18)
  1. CISPLATIN [Suspect]
     Active Substance: CISPLATIN
     Indication: Lung adenocarcinoma
     Dates: start: 20230210
  2. CISPLATIN [Suspect]
     Active Substance: CISPLATIN
     Dosage: FOA- INJECTION
     Dates: start: 20230302
  3. CISPLATIN [Suspect]
     Active Substance: CISPLATIN
     Dosage: FOA- INJECTION
     Dates: start: 20230403
  4. CISPLATIN [Suspect]
     Active Substance: CISPLATIN
     Dosage: FOA- INJECTION
     Dates: start: 20230424
  5. CISPLATIN [Suspect]
     Active Substance: CISPLATIN
     Dosage: FOA- INJECTION
     Dates: start: 20230517
  6. CISPLATIN [Suspect]
     Active Substance: CISPLATIN
     Dates: start: 20250505
  7. CISPLATIN [Suspect]
     Active Substance: CISPLATIN
     Dates: start: 20250530
  8. CISPLATIN [Suspect]
     Active Substance: CISPLATIN
     Route: 041
     Dates: start: 20250621, end: 20250621
  9. ALIMTA [Concomitant]
     Active Substance: PEMETREXED DISODIUM
     Indication: Lung adenocarcinoma
     Route: 041
     Dates: start: 20250530
  10. ALIMTA [Concomitant]
     Active Substance: PEMETREXED DISODIUM
     Route: 041
     Dates: start: 20250505
  11. ALIMTA [Concomitant]
     Active Substance: PEMETREXED DISODIUM
     Route: 041
     Dates: start: 20250621, end: 20250621
  12. HYDROXOCOBALA MIN ACETATE B-RED INJECTION ^KYORIN^ [Concomitant]
     Indication: Product used for unknown indication
     Dates: start: 20250621, end: 20250621
  13. PALONOSETRON (AS HYDROCHLORIDE)/ Netupitant Akynzeo Capsules [Concomitant]
     Indication: Product used for unknown indication
     Dates: start: 20250621, end: 20250621
  14. VINORELBINE [Concomitant]
     Active Substance: VINORELBINE TARTRATE
     Indication: Lung adenocarcinoma
     Route: 048
     Dates: start: 20230302
  15. VINORELBINE [Concomitant]
     Active Substance: VINORELBINE TARTRATE
     Route: 048
     Dates: start: 20230403
  16. VINORELBINE [Concomitant]
     Active Substance: VINORELBINE TARTRATE
     Route: 048
     Dates: start: 20230424
  17. VINORELBINE [Concomitant]
     Active Substance: VINORELBINE TARTRATE
     Route: 048
     Dates: start: 20230517
  18. VINORELBINE [Concomitant]
     Active Substance: VINORELBINE TARTRATE
     Route: 048
     Dates: start: 20230210

REACTIONS (8)
  - Rash pruritic [Recovered/Resolved]
  - Rash erythematous [Recovered/Resolved]
  - Pruritus [Recovered/Resolved]
  - Erythema [Recovered/Resolved]
  - Swelling [Recovered/Resolved]
  - Dyspnoea [Recovered/Resolved]
  - Paraesthesia [Recovered/Resolved]
  - Cough [Recovered/Resolved]

NARRATIVE: CASE EVENT DATE: 20250621
